FAERS Safety Report 4291273-7 (Version None)
Quarter: 2004Q1

REPORT INFORMATION
  Report Type: 
  Country: None (occurrence: None)
  Receive Date: 20040211
  Receipt Date: 20031124
  Transmission Date: 20041129
  Serious: No
  Sender: FDA-Public Use
  Company Number: US-GLAXOSMITHKLINE-A0441340A

PATIENT
  Age: 24 Year
  Sex: Female

DRUGS (7)
  1. PAXIL [Suspect]
     Indication: PANIC DISORDER
     Route: 048
  2. CLONAZEPAM [Concomitant]
     Indication: ANXIETY
     Dosage: .5MG AS REQUIRED
     Route: 048
  3. TRIVORA-21 [Concomitant]
     Indication: CONTRACEPTION
     Route: 048
  4. WELLBUTRIN SR [Concomitant]
     Dosage: 150MG PER DAY
     Route: 048
  5. ALLEGRA [Concomitant]
     Dosage: 60MG AS REQUIRED
     Route: 048
  6. INDOMETHACIN [Concomitant]
     Indication: PLANTAR FASCIITIS
     Dosage: 25MG THREE TIMES PER DAY
     Dates: start: 20030411, end: 20030401
  7. BACTRIM [Concomitant]

REACTIONS (1)
  - DRUG WITHDRAWAL SYNDROME [None]
